FAERS Safety Report 17889415 (Version 2)
Quarter: 2022Q2

REPORT INFORMATION
  Report Type: Spontaneous
  Country: US (occurrence: US)
  Receive Date: 20200612
  Receipt Date: 20220401
  Transmission Date: 20220721
  Serious: Yes (Other)
  Sender: FDA-Public Use
  Company Number: US-PFIZER INC-2020229050

PATIENT
  Age: 52 Year
  Sex: Female
  Weight: 112.49 kg

DRUGS (5)
  1. IBRANCE [Suspect]
     Active Substance: PALBOCICLIB
     Indication: Breast cancer metastatic
     Dosage: 125 MG
     Dates: start: 20160601
  2. IBRANCE [Suspect]
     Active Substance: PALBOCICLIB
     Dosage: 125MG, ONCE A DAY FOR 3 WEEKS AND ONE WEEK OFF
     Dates: start: 201606
  3. GLIPIZIDE [Concomitant]
     Active Substance: GLIPIZIDE
     Indication: Diabetes mellitus
     Dosage: UNK
  4. METFORMIN [Concomitant]
     Active Substance: METFORMIN HYDROCHLORIDE
     Indication: Diabetes mellitus
     Dosage: UNK
  5. LISINOPRIL AND HYDROCHLOROTHIAZIDE [Concomitant]
     Active Substance: HYDROCHLOROTHIAZIDE\LISINOPRIL
     Dosage: 1 DF, 1X/DAY

REACTIONS (3)
  - Second primary malignancy [Unknown]
  - Malignant melanoma [Unknown]
  - Illness [Unknown]
